FAERS Safety Report 5736979-5 (Version None)
Quarter: 2008Q2

REPORT INFORMATION
  Report Type: 
  Country: None (occurrence: None)
  Receive Date: 20080512
  Receipt Date: 20080512
  Transmission Date: 20081010
  Serious: Yes (Other)
  Sender: FDA-Public Use
  Company Number: None

PATIENT
  Age: 79 Year
  Sex: Female
  Weight: 49.4421 kg

DRUGS (1)
  1. FOSAMAX [Suspect]

REACTIONS (1)
  - ABDOMINAL PAIN UPPER [None]
